FAERS Safety Report 13518963 (Version 2)
Quarter: 2017Q3

REPORT INFORMATION
  Report Type: Spontaneous
  Country: US (occurrence: US)
  Receive Date: 20170505
  Receipt Date: 20170707
  Transmission Date: 20171127
  Serious: No
  Sender: FDA-Public Use
  Company Number: US-BAYER-2017-085729

PATIENT

DRUGS (1)
  1. MAGNEVIST [Suspect]
     Active Substance: GADOPENTETATE DIMEGLUMINE
     Indication: NUCLEAR MAGNETIC RESONANCE IMAGING
     Dosage: UNK UNK, ONCE
     Route: 042
     Dates: start: 201609, end: 201609

REACTIONS (5)
  - Burning sensation [None]
  - Rash macular [Not Recovered/Not Resolved]
  - Skin exfoliation [None]
  - Alopecia [Not Recovered/Not Resolved]
  - Facial pain [None]

NARRATIVE: CASE EVENT DATE: 2016
